FAERS Safety Report 10159084 (Version 1)
Quarter: 2014Q2

REPORT INFORMATION
  Report Type: Report from Study
  Country: US (occurrence: US)
  Receive Date: 20140508
  Receipt Date: 20140508
  Transmission Date: 20141212
  Serious: Yes (Other)
  Sender: FDA-Public Use
  Company Number: US-ROCHE-1370798

PATIENT
  Sex: Female

DRUGS (9)
  1. LUCENTIS [Suspect]
     Indication: DIABETIC RETINAL OEDEMA
     Dosage: OD
     Route: 050
  2. LUCENTIS [Suspect]
     Indication: DIABETIC RETINOPATHY
  3. LUCENTIS [Suspect]
     Indication: DIABETIC EYE DISEASE
  4. AVASTIN [Suspect]
     Indication: PRODUCT USED FOR UNKNOWN INDICATION
     Route: 065
     Dates: start: 20121130
  5. INSULIN [Concomitant]
     Dosage: X 2 WEEKS
     Route: 065
  6. ALCAINE [Concomitant]
     Indication: ANAESTHESIA
     Route: 061
  7. TETRAVISC [Concomitant]
     Route: 061
  8. XYLOCAINE GEL [Concomitant]
     Route: 047
  9. BETADINE [Concomitant]
     Route: 065

REACTIONS (6)
  - Ocular hyperaemia [Unknown]
  - Visual acuity reduced transiently [Unknown]
  - Vitreous detachment [Unknown]
  - Retinal haemorrhage [Unknown]
  - Macular fibrosis [Unknown]
  - Off label use [Unknown]
